FAERS Safety Report 9261348 (Version 1)
Quarter: 2013Q2

REPORT INFORMATION
  Report Type: Spontaneous
  Country: US (occurrence: US)
  Receive Date: 20130429
  Receipt Date: 20130429
  Transmission Date: 20140414
  Serious: Yes (Hospitalization)
  Sender: FDA-Public Use
  Company Number: US-PFIZER INC-2013133245

PATIENT
  Sex: Female
  Weight: 72.11 kg

DRUGS (6)
  1. GABAPENTIN [Suspect]
     Indication: CHRONIC INFLAMMATORY DEMYELINATING POLYRADICULONEUROPATHY
     Dosage: 100 MG, 3X/DAY
     Dates: start: 2011
  2. GABAPENTIN [Suspect]
     Dosage: 300MG IN THE MORNING, 600MG IN THE AFTERNOON AND 900 MG AT BED TIME
  3. GABAPENTIN [Suspect]
     Dosage: 300 MG, 3X/DAY
     Dates: end: 2012
  4. IMODIUM [Suspect]
     Indication: DIARRHOEA
     Dosage: UNK,AS NEEDED
  5. LANTUS [Concomitant]
     Indication: DIABETES MELLITUS
     Dosage: 5 TO 7 UNITS DAILY
  6. NOVOLOG [Concomitant]
     Indication: DIABETES MELLITUS
     Dosage: 3 TO 6 UNITS DAILY

REACTIONS (6)
  - Diarrhoea [Recovered/Resolved]
  - Drug intolerance [Unknown]
  - Increased appetite [Recovered/Resolved]
  - Visual impairment [Recovered/Resolved]
  - Gait disturbance [Recovered/Resolved]
  - Nightmare [Recovered/Resolved]
